FAERS Safety Report 15034368 (Version 1)
Quarter: 2018Q2

REPORT INFORMATION
  Report Type: Spontaneous
  Country: US (occurrence: US)
  Receive Date: 20180620
  Receipt Date: 20180620
  Transmission Date: 20180711
  Serious: No
  Sender: FDA-Public Use
  Company Number: US-009507513-1806USA001171

PATIENT
  Age: 24 Year
  Sex: Female
  Weight: 48 kg

DRUGS (1)
  1. NEXPLANON [Suspect]
     Active Substance: ETONOGESTREL
     Indication: CONTRACEPTION
     Dosage: IMPLANT IN THE LEFT ARM, EVERY 3 YEARS
     Route: 059
     Dates: start: 20161209

REACTIONS (8)
  - Pain [Not Recovered/Not Resolved]
  - Limb discomfort [Unknown]
  - Medical device site movement impairment [Not Recovered/Not Resolved]
  - Exposure via breast milk [Unknown]
  - Menometrorrhagia [Not Recovered/Not Resolved]
  - Device breakage [Not Recovered/Not Resolved]
  - Device kink [Not Recovered/Not Resolved]
  - Implant site swelling [Not Recovered/Not Resolved]

NARRATIVE: CASE EVENT DATE: 20161209
